FAERS Safety Report 4920387-0 (Version None)
Quarter: 2006Q1

REPORT INFORMATION
  Report Type: 
  Country: None (occurrence: None)
  Receive Date: 20060223
  Receipt Date: 20051005
  Transmission Date: 20060701
  Serious: Yes (Hospitalization)
  Sender: FDA-Public Use
  Company Number: US-MERCK-0510USA03836

PATIENT
  Age: 43 Year
  Sex: Female
  Weight: 95 kg

DRUGS (1)
  1. VIOXX [Suspect]
     Indication: RHEUMATOID ARTHRITIS
     Route: 048
     Dates: start: 20030130

REACTIONS (5)
  - DRUG INEFFECTIVE [None]
  - HYPOKALAEMIA [None]
  - INFLUENZA [None]
  - PAIN IN EXTREMITY [None]
  - PULMONARY EMBOLISM [None]
